FAERS Safety Report 9391530 (Version 1)
Quarter: 2013Q3

REPORT INFORMATION
  Report Type: Spontaneous
  Country: US (occurrence: US)
  Receive Date: 20130709
  Receipt Date: 20130709
  Transmission Date: 20140515
  Serious: Yes (Hospitalization)
  Sender: FDA-Public Use
  Company Number: US-JNJFOC-20130700980

PATIENT
  Sex: Female

DRUGS (1)
  1. ELMIRON [Suspect]
     Indication: CYSTITIS INTERSTITIAL
     Route: 048

REACTIONS (4)
  - Road traffic accident [Recovered/Resolved]
  - Cystitis interstitial [Recovered/Resolved]
  - Incorrect dose administered [Not Recovered/Not Resolved]
  - Adverse event [Unknown]
